FAERS Safety Report 17425110 (Version 1)
Quarter: 2020Q1

REPORT INFORMATION
  Report Type: Spontaneous
  Country: US (occurrence: US)
  Receive Date: 20200217
  Receipt Date: 20200217
  Transmission Date: 20200409
  Serious: No
  Sender: FDA-Public Use
  Company Number: US-MYLANLABS-2020M1014811

PATIENT
  Age: 68 Year
  Sex: Female

DRUGS (1)
  1. KETOCONAZOLE FOAM [Suspect]
     Active Substance: KETOCONAZOLE
     Indication: PRODUCT USED FOR UNKNOWN INDICATION
     Dosage: UNK UNK, PRN
     Route: 061

REACTIONS (2)
  - Device issue [Unknown]
  - Off label use [Unknown]
